FAERS Safety Report 25954164 (Version 1)
Quarter: 2025Q4

REPORT INFORMATION
  Report Type: Spontaneous
  Country: US (occurrence: US)
  Receive Date: 20251023
  Receipt Date: 20251023
  Transmission Date: 20260117
  Serious: Yes (Hospitalization)
  Sender: LGM PHARMA SOLUTIONS, LLC
  Company Number: US-LGM Pharma Solutions, LLC-2187165

PATIENT
  Sex: Male

DRUGS (1)
  1. MECAMYLAMINE HYDROCHLORIDE [Suspect]
     Active Substance: MECAMYLAMINE HYDROCHLORIDE
     Indication: Product used for unknown indication

REACTIONS (4)
  - Abdominal distension [Recovering/Resolving]
  - Gastrointestinal bacterial infection [Recovering/Resolving]
  - Abnormal faeces [Recovering/Resolving]
  - Constipation [Recovering/Resolving]
